FAERS Safety Report 17249183 (Version 1)
Quarter: 2020Q1

REPORT INFORMATION
  Report Type: Spontaneous
  Country: US (occurrence: US)
  Receive Date: 20200108
  Receipt Date: 20200108
  Transmission Date: 20200409
  Serious: No
  Sender: FDA-Public Use
  Company Number: US-009507513-2001USA001723

PATIENT

DRUGS (1)
  1. INTRON A [Suspect]
     Active Substance: INTERFERON ALFA-2B

REACTIONS (3)
  - Product supply issue [Unknown]
  - Product dose omission [Unknown]
  - No adverse event [Unknown]
